FAERS Safety Report 7385868-1 (Version None)
Quarter: 2011Q1

REPORT INFORMATION
  Report Type: 
  Country: None (occurrence: None)
  Receive Date: 20110331
  Receipt Date: 20110328
  Transmission Date: 20110831
  Serious: No
  Sender: FDA-Public Use
  Company Number: US-PFIZER INC-2011046891

PATIENT
  Sex: Female
  Weight: 53.061 kg

DRUGS (2)
  1. NEXIUM [Concomitant]
     Indication: GASTROOESOPHAGEAL REFLUX DISEASE
     Dosage: 20 MG, 2X/DAY
     Route: 048
  2. CHANTIX [Suspect]
     Indication: SMOKING CESSATION THERAPY
     Dosage: 0.5 MG, 1X/DAY
     Route: 048
     Dates: start: 20110217, end: 20110301

REACTIONS (4)
  - SLEEP DISORDER [None]
  - ERUCTATION [None]
  - NAUSEA [None]
  - DYSPEPSIA [None]
